FAERS Safety Report 9325489 (Version 2)
Quarter: 2013Q2

REPORT INFORMATION
  Report Type: Spontaneous
  Country: US (occurrence: None)
  Receive Date: 20130528
  Receipt Date: 20130603
  Transmission Date: 20140414
  Serious: Yes (Hospitalization)
  Sender: FDA-Public Use
  Company Number: USA/USA/13/0029581

PATIENT
  Age: 30 Year
  Sex: Female

DRUGS (4)
  1. QUETIAPINE FUMARATE [Suspect]
     Indication: ANXIETY
  2. CLONAZEPAM [Suspect]
     Indication: ANXIETY
  3. MEROPENEM [Suspect]
     Indication: MENINGITIS
  4. VANCOMYCIN [Suspect]
     Indication: MENINGITIS

REACTIONS (4)
  - Leukopenia [None]
  - Neutropenia [None]
  - Meningitis [None]
  - CNS ventriculitis [None]
